FAERS Safety Report 7622999-2 (Version None)
Quarter: 2011Q3

REPORT INFORMATION
  Report Type: 
  Country: None (occurrence: None)
  Receive Date: 20110720
  Receipt Date: 20110712
  Transmission Date: 20111222
  Serious: Yes (Hospitalization)
  Sender: FDA-Public Use
  Company Number: DE-SANOFI-AVENTIS-2011SA042799

PATIENT
  Age: 68 Year
  Sex: Female
  Weight: 62 kg

DRUGS (5)
  1. DOCETAXEL [Suspect]
     Indication: BREAST CANCER
     Route: 042
     Dates: start: 20110609, end: 20110609
  2. LEVOTHYROXINE SODIUM [Concomitant]
     Route: 048
     Dates: start: 20050101
  3. CAPECITABINE [Suspect]
     Indication: BREAST CANCER
     Route: 048
     Dates: start: 20110609, end: 20110701
  4. DOCETAXEL [Suspect]
     Route: 042
     Dates: start: 20110630, end: 20110630
  5. BISOPROLOL [Concomitant]
     Indication: HYPERTENSION
     Route: 048
     Dates: start: 19910101

REACTIONS (3)
  - PANCREATIC ATROPHY [None]
  - SUBILEUS [None]
  - FEBRILE NEUTROPENIA [None]
